FAERS Safety Report 5713935-4 (Version None)
Quarter: 2008Q2

REPORT INFORMATION
  Report Type: 
  Country: None (occurrence: None)
  Receive Date: 20080422
  Receipt Date: 20080422
  Transmission Date: 20081010
  Serious: Yes (Other)
  Sender: FDA-Public Use
  Company Number: None

PATIENT
  Sex: Male
  Weight: 77.1115 kg

DRUGS (1)
  1. HYDROXYCHLOROQUINE 200MG ZYDUS [Suspect]
     Indication: ARTHRITIS
     Dosage: 200MG BID PO
     Route: 048

REACTIONS (6)
  - DIARRHOEA [None]
  - FLATULENCE [None]
  - GASTRIC DISORDER [None]
  - PHARMACEUTICAL PRODUCT COMPLAINT [None]
  - VOMITING [None]
  - WEIGHT DECREASED [None]
